FAERS Safety Report 4411164-8 (Version None)
Quarter: 2004Q2

REPORT INFORMATION
  Report Type: 
  Country: None (occurrence: None)
  Receive Date: 20040630
  Receipt Date: 20040406
  Transmission Date: 20050107
  Serious: No
  Sender: FDA-Public Use
  Company Number: 04P-163-0246843-00

PATIENT
  Age: 76 Year
  Sex: Female
  Weight: 51.7101 kg

DRUGS (9)
  1. HUMIRA [Suspect]
     Indication: RHEUMATOID ARTHRITIS
     Dosage: 40 MG, 1 IN 2 WK, SUBCUTANEOUS
     Route: 058
     Dates: start: 20030301
  2. METHOTREXATE [Concomitant]
  3. EXTRA STRENGTH TYLENOL [Concomitant]
  4. DARVOCET [Concomitant]
  5. TAMOXIFEN CITRATE [Concomitant]
  6. ZESTORETIC [Concomitant]
  7. ASPIRIN [Concomitant]
  8. LORAZEPAM [Concomitant]
  9. PREDNISONE TAB [Concomitant]

REACTIONS (2)
  - CORNEAL OEDEMA [None]
  - URINARY TRACT INFECTION [None]
